FAERS Safety Report 14073401 (Version 14)
Quarter: 2018Q2

REPORT INFORMATION
  Report Type: Report from Study
  Country: CA (occurrence: CA)
  Receive Date: 20171011
  Receipt Date: 20180628
  Transmission Date: 20180711
  Serious: Yes (Life-Threatening, Hospitalization)
  Sender: FDA-Public Use
  Company Number: CA-SA-2017SA087661

PATIENT
  Age: 27 Year
  Sex: Female

DRUGS (13)
  1. WELLBUTRIN [Concomitant]
     Active Substance: BUPROPION HYDROCHLORIDE
     Dosage: 150 MG,BID
     Route: 048
  2. ALEMTUZUMAB [Suspect]
     Active Substance: ALEMTUZUMAB
     Dosage: 12 MG,QD
     Route: 041
     Dates: start: 20170509, end: 20170511
  3. ACETAMINOPHEN. [Concomitant]
     Active Substance: ACETAMINOPHEN
     Indication: PREMEDICATION
     Dosage: 1000 MG,PRN
     Route: 048
     Dates: start: 20170509
  4. DIMENHYDRINATE. [Concomitant]
     Active Substance: DIMENHYDRINATE
     Indication: PREMEDICATION
     Dosage: 50 MG,PRN
     Route: 048
     Dates: start: 20170509
  5. SYNTHROID [Concomitant]
     Active Substance: LEVOTHYROXINE SODIUM
     Indication: HYPOTHYROIDISM
     Dosage: .025 MG,QD
     Route: 048
  6. DIPHENHYDRAMINE. [Concomitant]
     Active Substance: DIPHENHYDRAMINE
     Indication: PREMEDICATION
     Dosage: 50 MG,PRN
     Route: 048
     Dates: start: 20170509
  7. CONCERTA [Concomitant]
     Active Substance: METHYLPHENIDATE HYDROCHLORIDE
     Dosage: UNK UNK,QD
     Route: 048
  8. IMOVANE [Concomitant]
     Active Substance: ZOPICLONE
     Dosage: UNK UNK,PRN
     Route: 048
  9. METHYLPREDNISOLONE. [Concomitant]
     Active Substance: METHYLPREDNISOLONE
     Indication: PREMEDICATION
     Dosage: 1 G,UNK
     Route: 042
     Dates: start: 20170509, end: 20170511
  10. RANITIDINE. [Concomitant]
     Active Substance: RANITIDINE
     Indication: PREMEDICATION
     Dosage: 150 MG,PRN
     Route: 048
     Dates: start: 20170509
  11. ACICLOVIR [Concomitant]
     Active Substance: ACYCLOVIR
     Indication: PREMEDICATION
     Dosage: 50 MG,UNK
     Route: 048
     Dates: start: 20170509
  12. ERGOCALCIFEROL. [Concomitant]
     Active Substance: ERGOCALCIFEROL
     Indication: NUTRITIONAL SUPPLEMENTATION
     Dosage: UNK UNK,QD
     Route: 048
  13. LORAZEPAM. [Concomitant]
     Active Substance: LORAZEPAM
     Indication: SLEEP DISORDER
     Dosage: 1 MG,PRN
     Route: 048

REACTIONS (34)
  - White blood cell count decreased [Recovered/Resolved]
  - Blood calcium decreased [Recovered/Resolved]
  - Eosinophil percentage increased [Recovered/Resolved]
  - Blood thyroid stimulating hormone increased [Not Recovered/Not Resolved]
  - Nausea [Recovered/Resolved]
  - Monocyte count increased [Recovered/Resolved]
  - Red blood cell count decreased [Recovered/Resolved]
  - Headache [Recovered/Resolved]
  - Platelet count decreased [Recovered/Resolved]
  - Eosinophil count increased [Recovered/Resolved]
  - Blood calcium increased [Recovered/Resolved]
  - Hypocalcaemia [Recovered/Resolved]
  - Red cell distribution width decreased [Not Recovered/Not Resolved]
  - Basophil count increased [Recovered/Resolved]
  - Haematocrit decreased [Recovered/Resolved]
  - Thyroid cancer [Recovered/Resolved]
  - Basophil percentage increased [Recovered/Resolved]
  - Monocyte percentage increased [Not Recovered/Not Resolved]
  - Asthenia [Recovered/Resolved]
  - Alanine aminotransferase increased [Recovered/Resolved]
  - Chest discomfort [Recovered/Resolved]
  - Dyspnoea [Recovered/Resolved]
  - Blood creatinine increased [Recovered/Resolved]
  - Hypoparathyroidism [Unknown]
  - Blood parathyroid hormone decreased [Unknown]
  - Blood calcium decreased [Recovered/Resolved]
  - Hypoaesthesia [Recovered/Resolved]
  - Muscular weakness [Recovering/Resolving]
  - Vomiting [Recovered/Resolved]
  - Urine abnormality [Recovered/Resolved]
  - Creatinine urine increased [Unknown]
  - Blood bilirubin increased [Unknown]
  - Lymphocyte count decreased [Recovered/Resolved]
  - Weight increased [Not Recovered/Not Resolved]

NARRATIVE: CASE EVENT DATE: 2017
